FAERS Safety Report 20440994 (Version 1)
Quarter: 2022Q1

REPORT INFORMATION
  Report Type: Spontaneous
  Country: NP (occurrence: NP)
  Receive Date: 20220208
  Receipt Date: 20220208
  Transmission Date: 20220424
  Serious: Yes (Other)
  Sender: FDA-Public Use
  Company Number: NP-AMGEN-NPLSP2022018301

PATIENT
  Age: 38 Year
  Sex: Male

DRUGS (5)
  1. FILGRASTIM [Suspect]
     Active Substance: FILGRASTIM
     Indication: Neutropenia
     Dosage: 480 MICROGRAM
     Route: 065
     Dates: start: 20200129
  2. VANCOMYCIN [Concomitant]
     Active Substance: VANCOMYCIN
     Indication: Febrile neutropenia
     Dosage: UNK
  3. PIPERACILLIN [Concomitant]
     Active Substance: PIPERACILLIN
     Indication: Febrile neutropenia
     Dosage: UNK
  4. TAZOBACTAM [Concomitant]
     Active Substance: TAZOBACTAM
     Indication: Febrile neutropenia
     Dosage: UNK
  5. ACYCLOVIR [Concomitant]
     Active Substance: ACYCLOVIR
     Indication: Febrile neutropenia
     Dosage: UNK

REACTIONS (3)
  - Erythropoiesis abnormal [Unknown]
  - Megakaryocytes abnormal [Unknown]
  - Lymphocyte count decreased [Unknown]

NARRATIVE: CASE EVENT DATE: 20200101
